FAERS Safety Report 5250825-8 (Version None)
Quarter: 2007Q1

REPORT INFORMATION
  Report Type: 
  Country: None (occurrence: None)
  Receive Date: 20070228
  Receipt Date: 20060712
  Transmission Date: 20070707
  Serious: No
  Sender: FDA-Public Use
  Company Number: US-GLAXOSMITHKLINE-A0612010A

PATIENT
  Age: 7 Month
  Sex: Male

DRUGS (3)
  1. LAMICTAL [Suspect]
     Dosage: 25MG PER DAY
     Dates: start: 20060707
  2. WELLBUTRIN XL [Suspect]
     Indication: DEPRESSION
     Dosage: 300MG PER DAY
     Route: 048
     Dates: start: 20060531
  3. VICODIN [Suspect]
     Indication: HEADACHE
     Route: 065

REACTIONS (1)
  - DRUG EXPOSURE VIA BREAST MILK [None]
